FAERS Safety Report 8912948 (Version 1)
Quarter: 2012Q4

REPORT INFORMATION
  Report Type: 
  Country: GB (occurrence: GB)
  Receive Date: 20121115
  Receipt Date: 20121115
  Transmission Date: 20130627
  Serious: Yes (Other)
  Sender: FDA-Public Use
  Company Number: GB-PERRIGO-12GB009648

PATIENT
  Sex: Male

DRUGS (1)
  1. NAPROXEN 250MG 16028/0144 [Suspect]
     Indication: GOUT
     Dosage: 500 mg, bid
     Route: 048

REACTIONS (3)
  - Oral discomfort [Recovering/Resolving]
  - Mouth ulceration [Unknown]
  - Toothache [Recovering/Resolving]
